FAERS Safety Report 6312994-8 (Version None)
Quarter: 2009Q3

REPORT INFORMATION
  Report Type: 
  Country: None (occurrence: None)
  Receive Date: 20090818
  Receipt Date: 20090806
  Transmission Date: 20100115
  Serious: Yes (Hospitalization)
  Sender: FDA-Public Use
  Company Number: US-MYLANLABS-2009S1006549

PATIENT
  Age: 63 Year
  Sex: Female
  Weight: 66.23 kg

DRUGS (8)
  1. INDOMETHACIN [Suspect]
     Indication: EYE PAIN
     Route: 048
     Dates: start: 20090331, end: 20090404
  2. NEXIUM [Concomitant]
     Indication: GASTROOESOPHAGEAL REFLUX DISEASE
  3. VITAMINS [Concomitant]
  4. LEVOTHYROXINE [Concomitant]
     Dates: start: 20081201
  5. GABAPENTIN [Concomitant]
     Dates: start: 20080301
  6. BETIMOL [Concomitant]
     Route: 047
     Dates: start: 20080801
  7. ALPHAGAN [Concomitant]
     Route: 047
     Dates: start: 20081001
  8. XYZAL [Concomitant]
     Dates: start: 20080601

REACTIONS (8)
  - ABDOMINAL PAIN UPPER [None]
  - BLOOD GLUCOSE INCREASED [None]
  - GASTRITIS [None]
  - HEADACHE [None]
  - HEART RATE INCREASED [None]
  - HYPERTENSION [None]
  - LOSS OF CONSCIOUSNESS [None]
  - VOMITING [None]
